FAERS Safety Report 16973693 (Version 2)
Quarter: 2019Q4

REPORT INFORMATION
  Report Type: Spontaneous
  Country: US (occurrence: US)
  Receive Date: 20191030
  Receipt Date: 20191212
  Transmission Date: 20200122
  Serious: No
  Sender: FDA-Public Use
  Company Number: US-GLAXOSMITHKLINE-US2019190833

PATIENT
  Sex: Female
  Weight: 92 kg

DRUGS (1)
  1. NUCALA [Suspect]
     Active Substance: MEPOLIZUMAB
     Indication: ASTHMA
     Dosage: 100 MG, EVERY 4 WEEKS,UNK
     Route: 065
     Dates: start: 20190422

REACTIONS (2)
  - Micturition urgency [Unknown]
  - Dizziness [Unknown]
